FAERS Safety Report 17061607 (Version 1)
Quarter: 2019Q4

REPORT INFORMATION
  Report Type: Report from Study
  Country: IT (occurrence: IT)
  Receive Date: 20191121
  Receipt Date: 20191121
  Transmission Date: 20200122
  Serious: Yes (Other)
  Sender: FDA-Public Use
  Company Number: IT-MYLANLABS-2019M1112217

PATIENT
  Age: 67 Year
  Sex: Female
  Weight: 84 kg

DRUGS (6)
  1. CARDICOR [Concomitant]
     Active Substance: BISOPROLOL
     Dosage: UNK
  2. OMEPRAZOLE. [Concomitant]
     Active Substance: OMEPRAZOLE
     Dosage: UNK
  3. ALMARYTM [Concomitant]
     Active Substance: FLECAINIDE ACETATE
     Dosage: UNK
  4. KETODOL                            /01001802/ [Concomitant]
     Active Substance: KETOROLAC TROMETHAMINE
     Dosage: UNK
  5. PACLITAXEL. [Suspect]
     Active Substance: PACLITAXEL
     Indication: BREAST CANCER
     Dosage: 150 MILLIGRAM, CYCLE
     Route: 042
     Dates: start: 20190719
  6. TRASTUZUMAB. [Suspect]
     Active Substance: TRASTUZUMAB
     Indication: BREAST CANCER
     Dosage: 168 MILLIGRAM, CYCLE
     Route: 042
     Dates: start: 20190719

REACTIONS (6)
  - Epistaxis [Not Recovered/Not Resolved]
  - Neutropenia [Not Recovered/Not Resolved]
  - Diarrhoea [Not Recovered/Not Resolved]
  - Leukopenia [Not Recovered/Not Resolved]
  - Anaemia [Not Recovered/Not Resolved]
  - Alopecia [Not Recovered/Not Resolved]

NARRATIVE: CASE EVENT DATE: 20190902
